FAERS Safety Report 9887421 (Version 4)
Quarter: 2014Q2

REPORT INFORMATION
  Report Type: Spontaneous
  Country: DE (occurrence: DE)
  Receive Date: 20140211
  Receipt Date: 20140407
  Transmission Date: 20141212
  Serious: Yes (Life-Threatening, Hospitalization, Other)
  Sender: FDA-Public Use
  Company Number: DE-JNJFOC-20140204950

PATIENT
  Age: 81 Year
  Sex: Male
  Weight: 90 kg

DRUGS (16)
  1. XARELTO [Suspect]
     Indication: CEREBROVASCULAR ACCIDENT PROPHYLAXIS
     Route: 048
     Dates: start: 201308, end: 20131217
  2. XARELTO [Suspect]
     Indication: ATRIAL FIBRILLATION
     Route: 048
     Dates: start: 201308, end: 20131217
  3. INSPRA [Concomitant]
     Route: 065
  4. NOVAMINSULFON [Concomitant]
     Route: 065
  5. GLUCOBAY [Concomitant]
     Route: 065
  6. VALORON N [Concomitant]
     Dosage: 50/4MG
     Route: 065
  7. RAMIPRIL [Concomitant]
     Route: 065
  8. AMLODIPINE [Concomitant]
     Route: 065
  9. FUROBETA [Concomitant]
     Route: 065
  10. METOHEXAL [Concomitant]
     Route: 065
  11. GLIMEPIRIDE [Concomitant]
     Route: 065
  12. OMEP [Concomitant]
     Route: 065
  13. NAPROXEN [Concomitant]
     Route: 065
  14. ZOLPIDEM [Concomitant]
     Route: 065
  15. FORMOTEROL BECLOMETHASONE [Concomitant]
     Route: 065
  16. SALBULAIR [Concomitant]
     Route: 065

REACTIONS (3)
  - Renal failure [Recovered/Resolved]
  - Hyperkalaemia [Recovered/Resolved]
  - Anaemia [Recovered/Resolved]
